FAERS Safety Report 14966647 (Version 1)
Quarter: 2018Q2

REPORT INFORMATION
  Report Type: Spontaneous
  Country: GB (occurrence: GB)
  Receive Date: 20180604
  Receipt Date: 20180604
  Transmission Date: 20180711
  Serious: Yes (Other)
  Sender: FDA-Public Use
  Company Number: GB-CONCORDIA PHARMACEUTICALS INC.-E2B_00012095

PATIENT
  Age: 79 Year
  Sex: Female

DRUGS (4)
  1. CALAMINE LOTION [Concomitant]
     Active Substance: CALAMINE LOTION
     Indication: RASH
     Route: 061
  2. METHOTREXATE. [Concomitant]
     Active Substance: METHOTREXATE
     Indication: PRODUCT USED FOR UNKNOWN INDICATION
     Dosage: DOSE AND DOSAGE FORM UNKNOWN
  3. PREDNISOLONE. [Suspect]
     Active Substance: PREDNISOLONE
     Indication: PRODUCT USED FOR UNKNOWN INDICATION
     Dosage: 15MG AND 10MG ON ALTERNATE DAYS FROM 08-MAY-2018. PRIOR: 15MG/DAY FOR A YEAR AND 30MG/DAY FOR A YEAR
     Route: 048
  4. DEXAMETHASONE. [Concomitant]
     Active Substance: DEXAMETHASONE
     Indication: PRODUCT USED FOR UNKNOWN INDICATION
     Dosage: DOSE AND DOSAGE FORM UNKNOWN

REACTIONS (8)
  - Rash pruritic [Not Recovered/Not Resolved]
  - Pemphigoid [Not Recovered/Not Resolved]
  - Cushing^s syndrome [Not Recovered/Not Resolved]
  - Herpes zoster [Not Recovered/Not Resolved]
  - Haemorrhage [Not Recovered/Not Resolved]
  - Rash [Not Recovered/Not Resolved]
  - General physical health deterioration [Not Recovered/Not Resolved]
  - Osteoporosis [Not Recovered/Not Resolved]
